FAERS Safety Report 5219404-2 (Version None)
Quarter: 2006Q4

REPORT INFORMATION
  Report Type: 
  Country: None (occurrence: None)
  Receive Date: 20061121
  Receipt Date: 20060906
  Transmission Date: 20070319
  Serious: No
  Sender: FDA-Public Use
  Company Number: TPA2006A01529

PATIENT
  Sex: Female

DRUGS (1)
  1. ROZEREM [Suspect]
     Indication: INSOMNIA
     Dosage: 8 MG, EVERY OTHER NIGHT, PER ORAL
     Route: 048
     Dates: start: 20060828, end: 20060902

REACTIONS (1)
  - NIGHTMARE [None]
